FAERS Safety Report 15156674 (Version 1)
Quarter: 2018Q3

REPORT INFORMATION
  Report Type: Spontaneous
  Country: BR (occurrence: BR)
  Receive Date: 20180717
  Receipt Date: 20180717
  Transmission Date: 20181010
  Serious: Yes (Other)
  Sender: FDA-Public Use
  Company Number: BR-ASTRAZENECA-2017SE55304

PATIENT
  Age: 72 Year
  Sex: Female

DRUGS (2)
  1. VANNAIR [Suspect]
     Active Substance: BUDESONIDE\FORMOTEROL FUMARATE DIHYDRATE
     Indication: ASTHMA
     Route: 055
  2. VANNAIR [Suspect]
     Active Substance: BUDESONIDE\FORMOTEROL FUMARATE DIHYDRATE
     Indication: ASTHMA
     Dosage: 160/4.5 MCG,TWO TIMES A DAY
     Route: 055
     Dates: start: 2013, end: 20170512

REACTIONS (5)
  - Asthmatic crisis [Recovered/Resolved]
  - Intentional product misuse [Recovered/Resolved]
  - Expired product administered [Unknown]
  - Drug administration error [Recovered/Resolved]
  - Mouth injury [Recovered/Resolved]

NARRATIVE: CASE EVENT DATE: 2013
